FAERS Safety Report 8630393 (Version 3)
Quarter: 2013Q1

REPORT INFORMATION
  Report Type: Report from Study
  Country: CA (occurrence: CA)
  Receive Date: 20120622
  Receipt Date: 20130123
  Transmission Date: 20140127
  Serious: Yes (Hospitalization, Other)
  Sender: FDA-Public Use
  Company Number: CA-ROCHE-1079328

PATIENT
  Age: 56 Year
  Sex: Female
  Weight: 93.98 kg

DRUGS (5)
  1. RITUXAN [Suspect]
     Indication: COLD TYPE HAEMOLYTIC ANAEMIA
     Route: 042
     Dates: start: 20120413, end: 201206
  2. FLUDARABINE [Suspect]
     Indication: COLD TYPE HAEMOLYTIC ANAEMIA
     Route: 065
  3. CELEXA [Concomitant]
     Route: 065
  4. ZYPREXA [Concomitant]
     Dosage: 20 MG
     Route: 065
  5. CLONAZEPAM [Concomitant]

REACTIONS (4)
  - Lobar pneumonia [Recovering/Resolving]
  - White blood cell count decreased [Unknown]
  - Full blood count decreased [Recovering/Resolving]
  - Cold type haemolytic anaemia [Unknown]
